FAERS Safety Report 19504441 (Version 3)
Quarter: 2021Q3

REPORT INFORMATION
  Report Type: Spontaneous
  Country: CA (occurrence: CA)
  Receive Date: 20210707
  Receipt Date: 20210915
  Transmission Date: 20211014
  Serious: Yes (Other)
  Sender: FDA-Public Use
  Company Number: CA-PFIZER INC-2021215481

PATIENT
  Age: 73 Year
  Sex: Male

DRUGS (14)
  1. RUXIENCE [Suspect]
     Active Substance: RITUXIMAB-PVVR
     Dosage: 500 MG AS SINGLE DOSE(NOT RECEIVED YET)
  2. PREDNISONE. [Concomitant]
     Active Substance: PREDNISONE
     Dosage: 5 MG
  3. RUXIENCE [Suspect]
     Active Substance: RITUXIMAB-PVVR
     Dosage: 1000 MG (DAY 15)
     Route: 041
     Dates: start: 20210223, end: 20210223
  4. APIXABAN [Concomitant]
     Active Substance: APIXABAN
     Dosage: 5 MG, 2X/DAY
  5. PREDNISONE. [Concomitant]
     Active Substance: PREDNISONE
     Dosage: TAPERING DOSE (STARTED FROM 40 MG IN FEB2021)
     Dates: start: 202102
  6. RUXIENCE [Suspect]
     Active Substance: RITUXIMAB-PVVR
     Indication: GRANULOMATOSIS WITH POLYANGIITIS
     Dosage: 1000 MG DAY 1 (FIRST DOSE IN HOSPITAL )
     Route: 041
     Dates: start: 20210209, end: 20210209
  7. EZETROL [Concomitant]
     Active Substance: EZETIMIBE
     Dosage: 10 MG, 1X/DAY
  8. REPATHA [Concomitant]
     Active Substance: EVOLOCUMAB
     Dosage: 140 MG, 1X/2 WEEK
     Route: 065
  9. VITAMIN D [VITAMIN D NOS] [Concomitant]
     Active Substance: VITAMIN D NOS
     Dosage: 1000 IU, 1X/DAY
  10. CALCIUM [Concomitant]
     Active Substance: CALCIUM
     Dosage: UNK
  11. TAPENTADOL [Concomitant]
     Active Substance: TAPENTADOL
     Dosage: UNK
  12. TYLENOL [Concomitant]
     Active Substance: ACETAMINOPHEN
     Indication: PREMEDICATION
     Dosage: 325 MG
     Dates: start: 20210223, end: 20210223
  13. AMITRIPTYLINE [Concomitant]
     Active Substance: AMITRIPTYLINE
     Dosage: 25 MG, AT BED TIME
     Route: 065
  14. SEPTRA [Concomitant]
     Active Substance: SULFAMETHOXAZOLE\TRIMETHOPRIM
     Dosage: 1 DF, 3X/WEEK, UNKNOWN DOSE (MONDAY, WEDNESDAY, FRIDAY)

REACTIONS (11)
  - Post herpetic neuralgia [Unknown]
  - Actinic keratosis [Unknown]
  - Asthenia [Not Recovered/Not Resolved]
  - Lung opacity [Unknown]
  - Herpes zoster [Unknown]
  - Fatigue [Not Recovered/Not Resolved]
  - Pulmonary embolism [Not Recovered/Not Resolved]
  - Fall [Unknown]
  - Off label use [Unknown]
  - Post procedural swelling [Not Recovered/Not Resolved]
  - Orthostatic hypotension [Unknown]

NARRATIVE: CASE EVENT DATE: 202103
